FAERS Safety Report 21043894 (Version 1)
Quarter: 2022Q3

REPORT INFORMATION
  Report Type: Spontaneous
  Country: GB (occurrence: GB)
  Receive Date: 20220705
  Receipt Date: 20220705
  Transmission Date: 20221027
  Serious: Yes (Hospitalization, Other)
  Sender: FDA-Public Use
  Company Number: GB-MHRA-MED-202206290909509410-KYBQV

PATIENT
  Age: 36 Year
  Sex: Male

DRUGS (2)
  1. VORTIOXETINE [Suspect]
     Active Substance: VORTIOXETINE
     Indication: Depression
     Dosage: 10 MILLIGRAM, QD
     Route: 065
     Dates: start: 20220406, end: 20220513
  2. AMISULPRIDE [Concomitant]
     Active Substance: AMISULPRIDE
     Indication: Schizophrenia
     Dosage: UNK
     Route: 065
     Dates: start: 20210414

REACTIONS (5)
  - Headache [Recovered/Resolved]
  - Tremor [Recovered/Resolved]
  - Confusional state [Recovered/Resolved]
  - Dizziness [Recovered/Resolved]
  - Nausea [Recovered/Resolved]

NARRATIVE: CASE EVENT DATE: 20220503
